FAERS Safety Report 7096862-2 (Version None)
Quarter: 2010Q4

REPORT INFORMATION
  Report Type: 
  Country: None (occurrence: None)
  Receive Date: 20101111
  Receipt Date: 20091207
  Transmission Date: 20110411
  Serious: No
  Sender: FDA-Public Use
  Company Number: US-KINGPHARMUSA00001-K200901542

PATIENT
  Age: 77 Year
  Sex: Female
  Weight: 65.76 kg

DRUGS (8)
  1. FLECTOR [Suspect]
     Indication: BACK PAIN
     Dosage: 1 PATCH, 1-2 X WEEK
     Route: 061
     Dates: start: 20091102, end: 20090101
  2. PLAVIX [Concomitant]
     Dosage: UNK
  3. COREG [Concomitant]
     Dosage: UNK
  4. ZETIA [Concomitant]
     Dosage: UNK
  5. CRESTOR [Concomitant]
     Dosage: UNK
  6. ASPIRIN [Concomitant]
     Dosage: UNK
  7. ADVIL [Concomitant]
     Indication: BACK PAIN
     Dosage: UNK
  8. ACETAMINOPHEN [Concomitant]
     Dosage: UNK

REACTIONS (5)
  - APPLICATION SITE ERYTHEMA [None]
  - APPLICATION SITE IRRITATION [None]
  - APPLICATION SITE PAIN [None]
  - APPLICATION SITE VESICLES [None]
  - DRUG INEFFECTIVE [None]
